FAERS Safety Report 5270670-7 (Version None)
Quarter: 2007Q1

REPORT INFORMATION
  Report Type: 
  Country: None (occurrence: None)
  Receive Date: 20070321
  Receipt Date: 20070313
  Transmission Date: 20070707
  Serious: Yes (Other)
  Sender: FDA-Public Use
  Company Number: PHBS2007JP04275

PATIENT
  Age: 85 Year
  Sex: Female

DRUGS (4)
  1. LUDIOMIL [Suspect]
     Indication: DEPRESSION
     Dosage: 10 MG/D
     Route: 048
  2. PAXIL [Suspect]
     Indication: DEPRESSION
     Dosage: 20 MG/D
     Route: 048
  3. WARFARIN SODIUM [Concomitant]
     Dosage: 1 MG/D
     Route: 048
  4. LANIRAPID [Concomitant]
     Route: 048

REACTIONS (1)
  - SEROTONIN SYNDROME [None]
